FAERS Safety Report 16591326 (Version 1)
Quarter: 2019Q3

REPORT INFORMATION
  Report Type: Spontaneous
  Country: IT (occurrence: IT)
  Receive Date: 20190718
  Receipt Date: 20190718
  Transmission Date: 20191004
  Serious: Yes (Hospitalization)
  Sender: FDA-Public Use
  Company Number: IT-PFIZER INC-2019301632

PATIENT
  Age: 29 Year
  Sex: Female

DRUGS (4)
  1. GABAPENTIN. [Suspect]
     Active Substance: GABAPENTIN
     Indication: DRUG ABUSE
     Dosage: 20 DF, SINGLE
     Route: 048
     Dates: start: 20190315, end: 20190315
  2. VALIUM [Suspect]
     Active Substance: DIAZEPAM
     Indication: DRUG ABUSE
     Dosage: 20 ML, SINGLE
     Route: 048
     Dates: start: 20190315, end: 20190315
  3. SERACTIL [Suspect]
     Active Substance: DEXIBUPROFEN
     Indication: DRUG ABUSE
     Dosage: UNK
     Route: 048
     Dates: start: 20190315, end: 20190315
  4. CEXIDAL [Suspect]
     Active Substance: CIPROFLOXACIN\FLUOCINOLONE ACETONIDE
     Indication: DRUG ABUSE
     Dosage: UNK
     Dates: start: 20190315, end: 20190315

REACTIONS (4)
  - Off label use [Unknown]
  - Drug abuse [Unknown]
  - Product use in unapproved indication [Unknown]
  - Sopor [Unknown]

NARRATIVE: CASE EVENT DATE: 20190315
